FAERS Safety Report 23347233 (Version 1)
Quarter: 2023Q4

REPORT INFORMATION
  Report Type: Spontaneous
  Country: US (occurrence: US)
  Receive Date: 20231228
  Receipt Date: 20231228
  Transmission Date: 20240109
  Serious: No
  Sender: FDA-Public Use
  Company Number: US-PFIZER INC-202300449009

PATIENT
  Age: 5 Year
  Sex: Male

DRUGS (1)
  1. OXBRYTA [Suspect]
     Active Substance: VOXELOTOR
     Dosage: 300 MG TABLET FOR ORAL SUSPENSION, 1 TABLET, ONCE DAILY
     Route: 048
     Dates: start: 20231208

REACTIONS (1)
  - Abdominal pain upper [Recovered/Resolved]
